FAERS Safety Report 12746275 (Version 1)
Quarter: 2016Q3

REPORT INFORMATION
  Report Type: Spontaneous
  Country: BR (occurrence: BR)
  Receive Date: 20160915
  Receipt Date: 20160915
  Transmission Date: 20161109
  Serious: Yes (Other)
  Sender: FDA-Public Use
  Company Number: BR-JNJFOC-20160913362

PATIENT
  Age: 55 Year
  Sex: Female
  Weight: 56 kg

DRUGS (2)
  1. DUROGESIC D-TRANS [Suspect]
     Active Substance: FENTANYL
     Indication: PAIN
     Route: 062
  2. DUROGESIC D-TRANS [Suspect]
     Active Substance: FENTANYL
     Indication: PAIN
     Route: 062

REACTIONS (6)
  - Abasia [Unknown]
  - Pain [Unknown]
  - Dysstasia [Unknown]
  - Drug dose omission [Unknown]
  - Inadequate diet [Unknown]
  - Weight decreased [Unknown]

NARRATIVE: CASE EVENT DATE: 201609
